APPROVED DRUG PRODUCT: DOPTELET SPRINKLE
Active Ingredient: AVATROMBOPAG MALEATE
Strength: EQ 10MG BASE
Dosage Form/Route: GRANULE;ORAL
Application: N219696 | Product #001
Applicant: AKARX INC
Approved: Jul 24, 2025 | RLD: Yes | RS: Yes | Type: RX

PATENTS:
Patent 7638536 | Expires: Jul 28, 2027

EXCLUSIVITY:
Code: NP | Date: Jul 24, 2028